FAERS Safety Report 5968118-X (Version None)
Quarter: 2008Q4

REPORT INFORMATION
  Report Type: 
  Country: None (occurrence: None)
  Receive Date: 20081110
  Receipt Date: 20081031
  Transmission Date: 20090506
  Serious: Yes (Other)
  Sender: FDA-Public Use
  Company Number: 081112-0000897

PATIENT

DRUGS (1)
  1. PANHEMATIN [Suspect]
     Indication: DRUG USE FOR UNKNOWN INDICATION
     Dosage: QW

REACTIONS (3)
  - NAUSEA [None]
  - SERUM FERRITIN INCREASED [None]
  - VOMITING [None]
